FAERS Safety Report 7220102-4 (Version None)
Quarter: 2011Q1

REPORT INFORMATION
  Report Type: 
  Country: None (occurrence: None)
  Receive Date: 20110111
  Receipt Date: 20110105
  Transmission Date: 20110831
  Serious: Yes (Other)
  Sender: FDA-Public Use
  Company Number: B0692092A

PATIENT
  Age: 72 Year
  Sex: Female
  Weight: 74 kg

DRUGS (14)
  1. ASPIRIN [Concomitant]
     Dates: start: 20100910, end: 20101203
  2. FOLIC ACID [Concomitant]
     Dates: start: 20100910, end: 20101230
  3. SOLIFENACIN SUCCINATE [Concomitant]
     Dates: start: 20101229
  4. PARACETAMOL [Concomitant]
     Dates: start: 20100910, end: 20101230
  5. SIMVASTATIN [Concomitant]
     Dates: start: 20100910
  6. FELODIPINE [Concomitant]
     Dates: start: 20100910
  7. AMPICILLIN SODIUM/SULBACTAM SODIUM [Suspect]
     Dates: start: 20101229
  8. LANSOPRAZOLE [Concomitant]
     Dates: start: 20100910, end: 20101008
  9. CODEINE PHOSPHATE [Concomitant]
     Dates: start: 20100909, end: 20101007
  10. DIPYRIDAMOLE [Concomitant]
     Dates: start: 20100910
  11. FERROUS SULFATE TAB [Concomitant]
     Dates: start: 20100910, end: 20101105
  12. LEVOTHYROXINE [Concomitant]
     Dates: start: 20100910
  13. CANDESARTAN [Concomitant]
     Dates: start: 20100910
  14. ATENOLOL [Concomitant]
     Dates: start: 20101008, end: 20101203

REACTIONS (2)
  - RASH GENERALISED [None]
  - RASH MACULAR [None]
